FAERS Safety Report 5170391-5 (Version None)
Quarter: 2006Q4

REPORT INFORMATION
  Report Type: 
  Country: None (occurrence: None)
  Receive Date: 20061204
  Receipt Date: 20061115
  Transmission Date: 20070319
  Serious: Yes (Hospitalization)
  Sender: FDA-Public Use
  Company Number: 2005170681

PATIENT
  Age: 58 Year
  Sex: Male
  Weight: 70 kg

DRUGS (11)
  1. SUTENT [Suspect]
     Indication: RENAL CELL CARCINOMA STAGE UNSPECIFIED
     Dosage: 50 MG (50 MG, 1 IN 1 D), ORAL
     Route: 048
     Dates: start: 20051103
  2. TRANEXAMIC AICD (TRANEXAMIC ACID) [Concomitant]
  3. METHYLPREDNISOLONE [Concomitant]
  4. RABEPRAZOLE SODIUM [Concomitant]
  5. MEPROBAMATE [Concomitant]
  6. ALUMINUM HYDROXIDE AND MAGNESIUM TRISILICATE [Concomitant]
  7. TITANOREINE (CARRAGEN, LIDOCAINE HYDROCHLORIDE, TITANIUM DIOXIDE, ZINC [Concomitant]
  8. FLUCONAZOLE [Concomitant]
  9. VASOBRAL (CAFFEIN, DIHYDRPERGOCRYPTINE MESIALTE) [Concomitant]
  10. BROMAZEPAM (BROMAZEPAM) [Concomitant]
  11. TAMSULOSIN (TAQMSULOSIN) [Concomitant]

REACTIONS (1)
  - PLEURAL EFFUSION [None]
